FAERS Safety Report 10016267 (Version 5)
Quarter: 2014Q4

REPORT INFORMATION
  Report Type: Spontaneous
  Country: US (occurrence: US)
  Receive Date: 20140317
  Receipt Date: 20141117
  Transmission Date: 20150528
  Serious: Yes (Other)
  Sender: FDA-Public Use
  Company Number: US-MERCK-1403USA003488

PATIENT
  Sex: Male

DRUGS (1)
  1. PROPECIA [Suspect]
     Active Substance: FINASTERIDE
     Indication: ALOPECIA
     Dosage: 1 MG, QD
     Route: 048
     Dates: start: 200205, end: 20110928

REACTIONS (4)
  - Gynaecomastia [Not Recovered/Not Resolved]
  - Mammoplasty [Unknown]
  - Breast mass [Unknown]
  - Hypertension [Unknown]

NARRATIVE: CASE EVENT DATE: 201103
